FAERS Safety Report 19873090 (Version 1)
Quarter: 2021Q3

REPORT INFORMATION
  Report Type: Spontaneous
  Country: CA (occurrence: CA)
  Receive Date: 20210923
  Receipt Date: 20210923
  Transmission Date: 20211014
  Serious: Yes (Hospitalization)
  Sender: FDA-Public Use
  Company Number: CA-TEVA-2021-CA-1955679

PATIENT
  Age: 79 Year
  Sex: Female
  Weight: 77 kg

DRUGS (7)
  1. TEVA?NAPROXEN [Suspect]
     Active Substance: NAPROXEN
     Indication: BACK PAIN
     Dosage: 750 MILLIGRAM DAILY;
     Route: 048
  2. CALCIUM + VITAMIN D [Concomitant]
     Active Substance: CALCIUM\VITAMIN D
  3. LYRICA [Concomitant]
     Active Substance: PREGABALIN
  4. AVALIDE [Concomitant]
     Active Substance: HYDROCHLOROTHIAZIDE\IRBESARTAN
  5. PREGABALIN. [Concomitant]
     Active Substance: PREGABALIN
  6. PREVACID [Concomitant]
     Active Substance: LANSOPRAZOLE
  7. FLEXERIL [Concomitant]
     Active Substance: CYCLOBENZAPRINE HYDROCHLORIDE

REACTIONS (5)
  - Acute myocardial infarction [Recovered/Resolved]
  - Troponin increased [Recovered/Resolved]
  - Chest discomfort [Recovered/Resolved]
  - Dyspnoea [Recovered/Resolved]
  - Hypertensive crisis [Recovered/Resolved]
